FAERS Safety Report 13899484 (Version 2)
Quarter: 2018Q3

REPORT INFORMATION
  Report Type: Spontaneous
  Country: US (occurrence: US)
  Receive Date: 20170823
  Receipt Date: 20180917
  Transmission Date: 20181010
  Serious: No
  Sender: FDA-Public Use
  Company Number: US-JAZZ-2017-US-008139

PATIENT
  Sex: Female

DRUGS (41)
  1. AMITIZA [Concomitant]
     Active Substance: LUBIPROSTONE
  2. VERAMYST [Concomitant]
     Active Substance: FLUTICASONE FUROATE
  3. VIVAGLOBIN [Concomitant]
     Active Substance: HUMAN IMMUNOGLOBULIN G
  4. ONDANSETRON [Concomitant]
     Active Substance: ONDANSETRON
  5. POTASSIUM CL [Concomitant]
     Active Substance: POTASSIUM CHLORIDE
  6. CALCIUM CHLORIDE. [Concomitant]
     Active Substance: CALCIUM CHLORIDE
  7. LEVOTHYROXINE SODIUM. [Concomitant]
     Active Substance: LEVOTHYROXINE SODIUM
  8. PROPRANOLOL [Concomitant]
     Active Substance: PROPRANOLOL HYDROCHLORIDE
  9. CYCLOBENZAPRINE HCL [Concomitant]
     Active Substance: CYCLOBENZAPRINE HYDROCHLORIDE
  10. LEVOCARNITINE. [Concomitant]
     Active Substance: LEVOCARNITINE
  11. XOPENEX [Concomitant]
     Active Substance: LEVALBUTEROL HYDROCHLORIDE
  12. ISOMETHEPTENE DICHLORAL APAP [Concomitant]
  13. ROBAXIN [Concomitant]
     Active Substance: METHOCARBAMOL
  14. NUVIGIL [Concomitant]
     Active Substance: ARMODAFINIL
  15. DIPHENHYDRAMINE HYDROCHLORIDE. [Concomitant]
     Active Substance: DIPHENHYDRAMINE HYDROCHLORIDE
  16. MIRALAX [Concomitant]
     Active Substance: POLYETHYLENE GLYCOL 3350
  17. ZYRTEC [Concomitant]
     Active Substance: CETIRIZINE HYDROCHLORIDE
  18. FLUDROCORTISONE [Concomitant]
     Active Substance: FLUDROCORTISONE
  19. METHYLPHENIDATE. [Concomitant]
     Active Substance: METHYLPHENIDATE
  20. METOCLOPRAMIDE. [Concomitant]
     Active Substance: METOCLOPRAMIDE
  21. MIDODRINE HCL [Concomitant]
     Active Substance: MIDODRINE HYDROCHLORIDE
  22. NAPROXEN SODIUM. [Concomitant]
     Active Substance: NAPROXEN SODIUM
  23. GUAIFENESIN. [Concomitant]
     Active Substance: GUAIFENESIN
  24. PULMICORT TURBUHALER [Concomitant]
     Active Substance: BUDESONIDE
  25. ZANAFLEX [Concomitant]
     Active Substance: TIZANIDINE HYDROCHLORIDE
  26. XYREM [Suspect]
     Active Substance: SODIUM OXYBATE
     Dosage: DOSE ADJUSTMENT
     Route: 048
     Dates: start: 200712, end: 201211
  27. ACETAZOLAMIDE. [Concomitant]
     Active Substance: ACETAZOLAMIDE
  28. MAXALT [Concomitant]
     Active Substance: RIZATRIPTAN BENZOATE
  29. ADVAIR HFA [Concomitant]
     Active Substance: FLUTICASONE PROPIONATE\SALMETEROL XINAFOATE
  30. IBUPROFEN. [Concomitant]
     Active Substance: IBUPROFEN
  31. XYREM [Suspect]
     Active Substance: SODIUM OXYBATE
     Indication: NARCOLEPSY
     Dosage: 2.25G, BID
     Route: 048
     Dates: start: 200708, end: 200710
  32. HYDROCODONE BITARTRATE. [Concomitant]
     Active Substance: HYDROCODONE BITARTRATE
  33. ZONISAMIDE. [Concomitant]
     Active Substance: ZONISAMIDE
  34. HYDROCODONE [Concomitant]
     Active Substance: HYDROCODONE
  35. PREVACID [Concomitant]
     Active Substance: LANSOPRAZOLE
  36. XYREM [Suspect]
     Active Substance: SODIUM OXYBATE
     Dosage: 4.5G, BID
     Route: 048
     Dates: start: 201211, end: 2012
  37. XYREM [Suspect]
     Active Substance: SODIUM OXYBATE
     Dosage: 1.5G, BID
     Route: 048
     Dates: start: 201403, end: 2014
  38. ESGIC [Concomitant]
     Active Substance: ACETAMINOPHEN\BUTALBITAL\CAFFEINE
  39. MODAFINIL. [Concomitant]
     Active Substance: MODAFINIL
  40. SINGULAIR [Concomitant]
     Active Substance: MONTELUKAST SODIUM
  41. TOPAMAX [Concomitant]
     Active Substance: TOPIRAMATE

REACTIONS (4)
  - Swelling [Unknown]
  - Nausea [Unknown]
  - Sodium retention [Unknown]
  - Abdominal distension [Unknown]
